FAERS Safety Report 7354546-7 (Version None)
Quarter: 2011Q1

REPORT INFORMATION
  Report Type: 
  Country: None (occurrence: None)
  Receive Date: 20110316
  Receipt Date: 20110121
  Transmission Date: 20110831
  Serious: Yes (Hospitalization, Other)
  Sender: FDA-Public Use
  Company Number: US-BAYER-2011-023002

PATIENT
  Sex: Female
  Weight: 91 kg

DRUGS (5)
  1. YAZ [Suspect]
     Indication: CONTRACEPTION
     Dosage: UNK
     Dates: start: 20060101
  2. IBUPROFEN [Concomitant]
     Indication: ANALGESIC THERAPY
     Dosage: UNK UNK, PRN
  3. BENADRYL [Concomitant]
     Indication: MULTIPLE ALLERGIES
     Dosage: UNK UNK, PRN
  4. ANTI-ASTHMATICS [Concomitant]
  5. NSAID'S [Concomitant]

REACTIONS (4)
  - PAIN [None]
  - NAUSEA [None]
  - CHOLELITHIASIS [None]
  - GALLBLADDER DISORDER [None]
